FAERS Safety Report 7064434-1 (Version None)
Quarter: 2010Q4

REPORT INFORMATION
  Report Type: 
  Country: None (occurrence: None)
  Receive Date: 20101027
  Receipt Date: 20101015
  Transmission Date: 20110411
  Serious: Yes (Other)
  Sender: FDA-Public Use
  Company Number: PHHY2010FR68952

PATIENT
  Age: 60 Year
  Sex: Male

DRUGS (3)
  1. TASIGNA [Suspect]
     Indication: CHRONIC MYELOID LEUKAEMIA
     Dosage: 200 MG DAILY
     Dates: start: 20100501
  2. TASIGNA [Suspect]
     Dosage: 200 MG EVERY 2 DAYS
  3. SPRYCEL [Concomitant]
     Dosage: UNK
     Dates: start: 20091001

REACTIONS (5)
  - BONE MARROW FAILURE [None]
  - HAEMOGLOBIN DECREASED [None]
  - NEUTROPHIL COUNT DECREASED [None]
  - PANCYTOPENIA [None]
  - PLATELET COUNT DECREASED [None]
